FAERS Safety Report 7077156-8 (Version None)
Quarter: 2010Q4

REPORT INFORMATION
  Report Type: 
  Country: None (occurrence: None)
  Receive Date: 20101101
  Receipt Date: 20101028
  Transmission Date: 20110411
  Serious: Yes (Life-Threatening, Hospitalization, Other)
  Sender: FDA-Public Use
  Company Number: A0889740A

PATIENT
  Sex: Male
  Weight: 99 kg

DRUGS (6)
  1. AVANDAMET [Suspect]
     Indication: DIABETES MELLITUS
     Dosage: 1TAB TWICE PER DAY
     Route: 048
     Dates: start: 20070101, end: 20100929
  2. DIAMICRON [Concomitant]
     Dosage: 1TAB PER DAY
     Route: 048
     Dates: start: 20070101
  3. OMEPRAZOLE [Concomitant]
     Dosage: 1TAB PER DAY
     Route: 048
     Dates: start: 20010101, end: 20100831
  4. SOMALGEN [Concomitant]
     Dosage: 1TAB PER DAY
     Route: 048
     Dates: start: 20090601
  5. DIOVAN [Concomitant]
     Dosage: 1TAB PER DAY
     Route: 048
     Dates: start: 20070101
  6. CLOPIDOGREL [Concomitant]
     Dosage: 75MG PER DAY
     Route: 048
     Dates: start: 20090601

REACTIONS (2)
  - MYOCARDIAL INFARCTION [None]
  - STENT PLACEMENT [None]
